FAERS Safety Report 8760667 (Version 3)
Quarter: 2013Q1

REPORT INFORMATION
  Report Type: Spontaneous
  Country: FR (occurrence: FR)
  Receive Date: 20120830
  Receipt Date: 20130114
  Transmission Date: 20140127
  Serious: Yes (Life-Threatening)
  Sender: FDA-Public Use
  Company Number: FR-ABBOTT-12P-056-0974371-00

PATIENT
  Age: 6 Year
  Sex: Male
  Weight: 30 kg

DRUGS (1)
  1. SEVORANE [Suspect]
     Indication: GENERAL ANAESTHESIA
     Dosage: 10 MINUTES
     Route: 055
     Dates: start: 20120712, end: 20120712

REACTIONS (4)
  - Ventricular fibrillation [Recovered/Resolved]
  - Cardio-respiratory arrest [Recovered/Resolved]
  - Convulsion [Recovered/Resolved]
  - Rhabdomyolysis [Unknown]
